FAERS Safety Report 5944252-5 (Version None)
Quarter: 2008Q4

REPORT INFORMATION
  Report Type: 
  Country: None (occurrence: None)
  Receive Date: 20081104
  Receipt Date: 20081028
  Transmission Date: 20090506
  Serious: Yes (Death, Hospitalization)
  Sender: FDA-Public Use
  Company Number: US024948

PATIENT
  Sex: Male
  Weight: 64 kg

DRUGS (2)
  1. TRISENOX [Suspect]
     Indication: MYELODYSPLASTIC SYNDROME
     Dosage: THIRD MAINTENANCE WEEK QD INTRAVENOUS DRIP
     Route: 041
     Dates: start: 20080514, end: 20080708
  2. ASCORBIC ACID [Concomitant]

REACTIONS (8)
  - ACUTE MYELOID LEUKAEMIA [None]
  - BACTERIAL SEPSIS [None]
  - BRONCHOPNEUMONIA [None]
  - CARDIAC FIBRILLATION [None]
  - CARDIAC FLUTTER [None]
  - RESPIRATORY DISTRESS [None]
  - TACHYCARDIA [None]
  - THROMBOCYTOPENIA [None]
